FAERS Safety Report 25161315 (Version 3)
Quarter: 2025Q3

REPORT INFORMATION
  Report Type: Spontaneous
  Country: EU (occurrence: EU)
  Receive Date: 20250404
  Receipt Date: 20250714
  Transmission Date: 20251020
  Serious: Yes (Congenital Anomaly, Other)
  Sender: VERTEX
  Company Number: EU-VERTEX PHARMACEUTICALS-2025-005145

PATIENT
  Age: 32 Year
  Sex: Female

DRUGS (1)
  1. ELEXACAFTOR\IVACAFTOR\TEZACAFTOR [Suspect]
     Active Substance: ELEXACAFTOR\IVACAFTOR\TEZACAFTOR
     Indication: Cystic fibrosis
     Route: 048

REACTIONS (5)
  - Intestinal atresia [Unknown]
  - Foetal hypokinesia [Unknown]
  - Volvulus [Unknown]
  - Exposure during pregnancy [Unknown]
  - Off label use [Unknown]
